FAERS Safety Report 8561378-0 (Version None)
Quarter: 2012Q3

REPORT INFORMATION
  Report Type: 
  Country: None (occurrence: None)
  Receive Date: 20120802
  Receipt Date: 20120723
  Transmission Date: 20120928
  Serious: Yes (Hospitalization)
  Sender: FDA-Public Use
  Company Number: US-GLAXOSMITHKLINE-A0724624A

PATIENT
  Age: 53 Year
  Sex: Male
  Weight: 140.9 kg

DRUGS (4)
  1. MULTI-VITAMIN [Concomitant]
  2. AVANDIA [Suspect]
     Indication: DIABETES MELLITUS
     Dosage: 8MG PER DAY
     Route: 048
     Dates: start: 20000608, end: 20060101
  3. LORTAB [Concomitant]
  4. VICODIN [Concomitant]

REACTIONS (19)
  - HEPATOMEGALY [None]
  - FATIGUE [None]
  - PAIN [None]
  - BONE DENSITY DECREASED [None]
  - HEPATIC STEATOSIS [None]
  - DEPRESSION [None]
  - ERECTILE DYSFUNCTION [None]
  - DYSPNOEA [None]
  - SLEEP APNOEA SYNDROME [None]
  - MYOCARDIAL INFARCTION [None]
  - ANXIETY [None]
  - HYPERLIPIDAEMIA [None]
  - INSOMNIA [None]
  - CARDIAC DISORDER [None]
  - OEDEMA PERIPHERAL [None]
  - RIB FRACTURE [None]
  - HYPERTENSION [None]
  - PULMONARY HYPERTENSION [None]
  - WEIGHT INCREASED [None]
